FAERS Safety Report 10592374 (Version 3)
Quarter: 2015Q1

REPORT INFORMATION
  Report Type: Spontaneous
  Country: None (occurrence: None)
  Receive Date: 20141117
  Receipt Date: 20150225
  Transmission Date: 20150720
  Serious: Yes (Death, Hospitalization, Other)
  Sender: FDA-Public Use
  Company Number: ADR-2014-02110

PATIENT
  Age: 62 Year
  Sex: Male

DRUGS (1)
  1. LIORESAL [Suspect]
     Active Substance: BACLOFEN
     Dosage: 190MCG/DAY, ^SEE B5^

REACTIONS (5)
  - Muscle spasms [None]
  - General physical health deterioration [None]
  - Device malfunction [None]
  - Pain [None]
  - Device kink [None]

NARRATIVE: CASE EVENT DATE: 20140423
